FAERS Safety Report 7467696-1 (Version None)
Quarter: 2011Q2

REPORT INFORMATION
  Report Type: 
  Country: None (occurrence: None)
  Receive Date: 20110505
  Receipt Date: 20110505
  Transmission Date: 20111010
  Serious: Yes (Hospitalization)
  Sender: FDA-Public Use
  Company Number: None

PATIENT
  Sex: Female
  Weight: 107 kg

DRUGS (2)
  1. DAUNORUBICIN HCL [Suspect]
     Dosage: 390 MG
     Dates: end: 20110407
  2. CYTARABINE [Suspect]
     Dosage: 1540 MG
     Dates: end: 20110411

REACTIONS (3)
  - POSTERIOR REVERSIBLE ENCEPHALOPATHY SYNDROME [None]
  - UNRESPONSIVE TO STIMULI [None]
  - BLINDNESS [None]
